FAERS Safety Report 7482088-7 (Version None)
Quarter: 2011Q2

REPORT INFORMATION
  Report Type: 
  Country: None (occurrence: None)
  Receive Date: 20110516
  Receipt Date: 20110506
  Transmission Date: 20111010
  Serious: Yes (Hospitalization)
  Sender: FDA-Public Use
  Company Number: US-ASTRAZENECA-2011SE27004

PATIENT
  Sex: Female

DRUGS (3)
  1. SYMBICORT [Suspect]
     Dosage: 1 PUFF
     Route: 055
  2. NEXIUM [Concomitant]
     Route: 048
  3. SYMBICORT [Suspect]
     Dosage: 2 PUFF
     Route: 055

REACTIONS (2)
  - INTENTIONAL DRUG MISUSE [None]
  - PNEUMONIA [None]
